FAERS Safety Report 4681081-7 (Version None)
Quarter: 2005Q2

REPORT INFORMATION
  Report Type: 
  Country: None (occurrence: None)
  Receive Date: 20050603
  Receipt Date: 20050524
  Transmission Date: 20051028
  Serious: Yes (Other)
  Sender: FDA-Public Use
  Company Number: GB-GLAXOSMITHKLINE-B0382211A

PATIENT
  Age: 56 Year
  Sex: Female

DRUGS (5)
  1. AVANDIA [Suspect]
     Indication: DIABETES MELLITUS
     Dosage: 4MG UNKNOWN
     Route: 048
     Dates: start: 20050218, end: 20050319
  2. AMLODIPINE [Concomitant]
     Dosage: 5MG PER DAY
     Route: 048
     Dates: start: 19990101
  3. METFORMIN [Concomitant]
     Dosage: 850MG PER DAY
     Route: 048
     Dates: start: 20010101
  4. PARACETAMOL [Concomitant]
     Route: 048
  5. ATENOLOL [Concomitant]
     Dosage: 50MG PER DAY
     Route: 048
     Dates: start: 20010101

REACTIONS (7)
  - FATIGUE [None]
  - LOCAL SWELLING [None]
  - NAUSEA [None]
  - OEDEMA MOUTH [None]
  - RASH [None]
  - SOMNOLENCE [None]
  - SWELLING FACE [None]
